FAERS Safety Report 7015529-X (Version None)
Quarter: 2010Q3

REPORT INFORMATION
  Report Type: 
  Country: None (occurrence: None)
  Receive Date: 20100923
  Receipt Date: 20100908
  Transmission Date: 20110219
  Serious: Yes (Life-Threatening, Hospitalization, Disabling)
  Sender: FDA-Public Use
  Company Number: 2010DE0030

PATIENT
  Age: 4 Year
  Sex: Male

DRUGS (1)
  1. ORFADIN [Suspect]
     Indication: TYROSINAEMIA
     Dosage: 21 MG (21 MG, 1 IN 1 D)
     Dates: start: 20060101

REACTIONS (7)
  - APNOEA [None]
  - BRONCHITIS [None]
  - DIARRHOEA [None]
  - INFECTION [None]
  - PARESIS [None]
  - POLYNEUROPATHY [None]
  - TREATMENT NONCOMPLIANCE [None]
